FAERS Safety Report 8452496-6 (Version None)
Quarter: 2012Q2

REPORT INFORMATION
  Report Type: 
  Country: None (occurrence: None)
  Receive Date: 20120620
  Receipt Date: 20120615
  Transmission Date: 20120825
  Serious: Yes (Other)
  Sender: FDA-Public Use
  Company Number: PHEH2012US012124

PATIENT
  Sex: Male

DRUGS (2)
  1. METOPROLOL SUCCINATE [Concomitant]
     Dosage: 3 DF, UNK
  2. GILENYA [Suspect]
     Indication: MULTIPLE SCLEROSIS
     Dosage: 0.5 MG, QD
     Route: 048
     Dates: start: 20120605, end: 20120608

REACTIONS (5)
  - ELECTROCARDIOGRAM QT PROLONGED [None]
  - VENTRICULAR TACHYCARDIA [None]
  - ELECTROCARDIOGRAM PR PROLONGATION [None]
  - NODAL RHYTHM [None]
  - ATRIOVENTRICULAR BLOCK SECOND DEGREE [None]
